FAERS Safety Report 12701042 (Version 1)
Quarter: 2016Q3

REPORT INFORMATION
  Report Type: Spontaneous
  Country: US (occurrence: None)
  Receive Date: 20160830
  Receipt Date: 20160830
  Transmission Date: 20161109
  Serious: Yes (Hospitalization, Other)
  Sender: FDA-Public Use
  Company Number: None

PATIENT
  Age: 10 Year
  Sex: Female
  Weight: 27.22 kg

DRUGS (4)
  1. CLONIDINE. [Concomitant]
     Active Substance: CLONIDINE
  2. CONCERTA [Concomitant]
     Active Substance: METHYLPHENIDATE HYDROCHLORIDE
  3. LEXAPRO [Concomitant]
     Active Substance: ESCITALOPRAM OXALATE
  4. TAMIFLU [Suspect]
     Active Substance: OSELTAMIVIR PHOSPHATE
     Indication: INFLUENZA
     Dosage: 3 TEASPOON(S)  TWICE A DAY TAKEN BY MOUTH
     Route: 048
     Dates: start: 20150114, end: 20150116

REACTIONS (5)
  - Social avoidant behaviour [None]
  - Abnormal behaviour [None]
  - Hypersomnia [None]
  - Therapy non-responder [None]
  - Mobility decreased [None]

NARRATIVE: CASE EVENT DATE: 20150128
